FAERS Safety Report 10377723 (Version 1)
Quarter: 2014Q1

REPORT INFORMATION
  Report Type: Spontaneous
  Country: US (occurrence: None)
  Receive Date: 20140306
  Receipt Date: 20140306
  Transmission Date: 20141002
  Serious: Yes (Hospitalization, Other)
  Sender: FDA-Public Use
  Company Number: 163-21880-13031856

PATIENT
  Age: 82 Year
  Sex: Female
  Weight: 65.77 kg

DRUGS (29)
  1. REVLIMID (LENALIDOMIDE) (10 MILLIGRAM, CAPSULES) [Suspect]
     Indication: MYELODYSPLASTIC SYNDROME
     Route: 048
     Dates: start: 20120717
  2. ASPIRIN (ACETYLSALICYLIC ACID) (TABLETS) [Concomitant]
  3. B-12 (CYANOCOBALAMIN) (UNKNOWN) [Concomitant]
  4. VITAMIN B-COMPLEX (VITAMIN B-COMPLEX) (UNKNOWN) [Concomitant]
  5. BENZONATATE (BENZONATATE) (CAPSULES) [Concomitant]
  6. CALCIUM CARBONATE (CALCIUM CARBONATE) (UNKNOWN) [Concomitant]
  7. COD LIVER OIL (COD-LIVER OIL) (UNKNOWN) [Concomitant]
  8. COQ10 SG 100 (UBIDECARENONE) (UNKNOWN) [Concomitant]
  9. DEXILANT (DEXLANSOPRAZOLE) (UNKNOWN) [Concomitant]
  10. DIOVAN HCT (CO-DIOVAN) (TABLETS) [Concomitant]
  11. FLOVENT HCT (FLUTICASONE PROPIONATE) (UNKNOWN) [Concomitant]
  12. FOLIC ACID (FOLIC ACID) (UNKNOWN) [Concomitant]
  13. FUROSEMIDE (FUROSEMIDE) (TABLETS) [Concomitant]
  14. ISOPTO TEARS (ISOPTO TEARS) (DROPS) [Concomitant]
  15. MAGNESIUM GLUCONATE (MAGNESIUM GLUCONATE) (UNKNOWN) [Concomitant]
  16. RED YEAST RICE (MONASCUS PURPUREUS) (CAPSULES) [Concomitant]
  17. ANODIN PLUS (CAPSULES) [Concomitant]
  18. MULTIVITAMINS (MULTIVITAMINS) (UNKNOWN) [Concomitant]
  19. NORVASC (AMLODIPINE BESILATE) (TABLETS) [Concomitant]
  20. NYSTATIN (NYSTATIN) (UNKNOWN) [Concomitant]
  21. OMEGA 3 (FISH OIL) (UNKNOWN) [Concomitant]
  22. PROAIR HFA (SALBUTAMOL SULFATE) (UNKNOWN) [Concomitant]
  23. SERTRALINE HCL (SERTRALINE HYDROCHLORIDE) (UNKNOWN) [Concomitant]
  24. SINGULAIR (MONTELUKAST SODIUM) (UNKNOWN) [Concomitant]
  25. SYNTHROID (LEVOTHYROXINE SODIUM) (UNKNOWN) [Concomitant]
  26. VITAMIN D3 (COLECALCIFEROL) (UNKNOWN) [Concomitant]
  27. ZETIA (EZETIMIBE) (UNKNOWN) [Concomitant]
  28. ZYRTEC (CETIRIZINE HYDROCHLORIDE) (UNKNOWN) [Concomitant]
  29. OXYCODONE/ACETAMINOPHEN (OXYCOCET) (TABLETS) [Concomitant]

REACTIONS (2)
  - Cardiac failure congestive [None]
  - Sinusitis [None]
